FAERS Safety Report 8355001-8 (Version None)
Quarter: 2012Q2

REPORT INFORMATION
  Report Type: 
  Country: None (occurrence: None)
  Receive Date: 20120511
  Receipt Date: 20120507
  Transmission Date: 20120825
  Serious: Yes (Hospitalization)
  Sender: FDA-Public Use
  Company Number: FR-TEVA-337189USA

PATIENT
  Sex: Male
  Weight: 94.5 kg

DRUGS (3)
  1. CHLORAMBUCIL [Suspect]
     Route: 048
     Dates: start: 20120112, end: 20120408
  2. TREANDA [Suspect]
     Route: 042
  3. RITUXIMAB [Suspect]
     Dosage: 33.3333 MILLIGRAM;
     Dates: start: 20120112, end: 20120402

REACTIONS (1)
  - HYPERGLYCAEMIA [None]
